FAERS Safety Report 21897988 (Version 1)
Quarter: 2023Q1

REPORT INFORMATION
  Report Type: Spontaneous
  Country: US (occurrence: None)
  Receive Date: 20230120
  Receipt Date: 20230120
  Transmission Date: 20230417
  Serious: Yes (Hospitalization)
  Sender: FDA-Public Use
  Company Number: None

PATIENT
  Age: 55 Year
  Sex: Female
  Weight: 52.65 kg

DRUGS (2)
  1. BENDAMUSTINE [Suspect]
     Active Substance: BENDAMUSTINE
  2. RITUXAN [Suspect]
     Active Substance: RITUXIMAB

REACTIONS (6)
  - Febrile neutropenia [None]
  - Laboratory test abnormal [None]
  - Neutropenic infection [None]
  - Fistula [None]
  - Discomfort [None]
  - Diarrhoea [None]

NARRATIVE: CASE EVENT DATE: 20200112
